FAERS Safety Report 10032800 (Version 1)
Quarter: 2014Q1

REPORT INFORMATION
  Report Type: Spontaneous
  Country: VE (occurrence: VE)
  Receive Date: 20140324
  Receipt Date: 20140324
  Transmission Date: 20141002
  Serious: Yes (Other)
  Sender: FDA-Public Use
  Company Number: PHHY2014VE034560

PATIENT
  Sex: 0

DRUGS (3)
  1. TOBRAMYCIN [Suspect]
     Route: 064
  2. CEFTAZIDIME [Suspect]
     Route: 064
  3. ANTIBIOTICS [Suspect]
     Route: 064

REACTIONS (3)
  - Low birth weight baby [Unknown]
  - Premature baby [Unknown]
  - Foetal exposure during pregnancy [Unknown]
